FAERS Safety Report 7070021-1 (Version None)
Quarter: 2010Q4

REPORT INFORMATION
  Report Type: 
  Country: None (occurrence: None)
  Receive Date: 20101028
  Receipt Date: 20100721
  Transmission Date: 20110411
  Serious: No
  Sender: FDA-Public Use
  Company Number: US-WYE-H16494110

PATIENT
  Age: 63 Year
  Sex: Female
  Weight: 77.18 kg

DRUGS (3)
  1. ADVIL [Suspect]
     Indication: INFLAMMATION
     Route: 048
     Dates: start: 20100718, end: 20100721
  2. ADVIL [Suspect]
     Indication: BACK PAIN
  3. VALIUM [Concomitant]

REACTIONS (1)
  - DRUG INEFFECTIVE [None]
